FAERS Safety Report 18865463 (Version 1)
Quarter: 2021Q1

REPORT INFORMATION
  Report Type: Spontaneous
  Country: NL (occurrence: NL)
  Receive Date: 20210208
  Receipt Date: 20210208
  Transmission Date: 20210420
  Serious: Yes (Other)
  Sender: FDA-Public Use
  Company Number: NL-NOVOPROD-783504

PATIENT
  Age: 51 Year
  Sex: Male
  Weight: 68 kg

DRUGS (4)
  1. NOVORAPID [Suspect]
     Active Substance: INSULIN ASPART
     Dosage: DOSE DECREASED
     Route: 065
  2. NOVORAPID [Suspect]
     Active Substance: INSULIN ASPART
     Indication: TYPE 1 DIABETES MELLITUS
     Dosage: 1 DF EVERY 4 HOURS 5 UNITS PER DAY
     Route: 065
     Dates: start: 201010
  3. COVID?19 VACCINE NOS. [Suspect]
     Active Substance: COVID-19 VACCINE NOS
     Indication: COVID-19 IMMUNISATION
     Dosage: 1 DF
     Route: 065
     Dates: start: 20210119
  4. AMYLAC [Concomitant]
     Dosage: 1 DF GASTRO?RESISTANT CAPSULE
     Route: 065

REACTIONS (3)
  - Chills [Recovering/Resolving]
  - Nausea [Recovered/Resolved]
  - Hypoglycaemia [Recovering/Resolving]

NARRATIVE: CASE EVENT DATE: 20210121
